FAERS Safety Report 6998671-9 (Version None)
Quarter: 2010Q3

REPORT INFORMATION
  Report Type: 
  Country: None (occurrence: None)
  Receive Date: 20100920
  Receipt Date: 20070921
  Transmission Date: 20110219
  Serious: No
  Sender: FDA-Public Use
  Company Number: US-ASTRAZENECA-2006UW22956

PATIENT
  Age: 19337 Day
  Sex: Male
  Weight: 77.6 kg

DRUGS (13)
  1. SEROQUEL [Suspect]
     Indication: SCHIZOPHRENIA
     Route: 048
     Dates: start: 20030513
  2. SEROQUEL [Suspect]
     Indication: BIPOLAR DISORDER
     Route: 048
     Dates: start: 20030513
  3. SEROQUEL [Suspect]
     Indication: DEPRESSION
     Route: 048
     Dates: start: 20030513
  4. SEROQUEL [Suspect]
     Route: 048
     Dates: start: 20050101
  5. SEROQUEL [Suspect]
     Route: 048
     Dates: start: 20050101
  6. SEROQUEL [Suspect]
     Route: 048
     Dates: start: 20050101
  7. HALDOL [Concomitant]
     Dates: start: 20030513
  8. HALDOL [Concomitant]
  9. AMBIEN [Concomitant]
     Dates: start: 20050108
  10. ALTACE [Concomitant]
     Dates: start: 20050108
  11. BIAXIN [Concomitant]
     Dates: start: 20030603
  12. LIPITOR [Concomitant]
     Dates: start: 20030611
  13. ZOLOFT [Concomitant]
     Dosage: 150 MG HALF TAB Q HS
     Dates: start: 20050513

REACTIONS (5)
  - DIABETES MELLITUS [None]
  - DIABETES MELLITUS INADEQUATE CONTROL [None]
  - DYSPNOEA [None]
  - RENAL DISORDER [None]
  - TYPE 1 DIABETES MELLITUS [None]
